FAERS Safety Report 6007790-5 (Version None)
Quarter: 2008Q4

REPORT INFORMATION
  Report Type: 
  Country: None (occurrence: None)
  Receive Date: 20081217
  Receipt Date: 20080609
  Transmission Date: 20090506
  Serious: No
  Sender: FDA-Public Use
  Company Number: US-ASTRAZENECA-2008UW11542

PATIENT
  Age: 81 Year
  Sex: Female
  Weight: 50.8 kg

DRUGS (8)
  1. CRESTOR [Suspect]
     Indication: BLOOD CHOLESTEROL INCREASED
     Route: 048
     Dates: start: 20080401
  2. ALTACE [Concomitant]
  3. BETAPACE [Concomitant]
  4. PLAVIX [Concomitant]
  5. LANOXIN [Concomitant]
  6. TRICOR [Concomitant]
  7. ANTIVERT [Concomitant]
  8. ATIVAN [Concomitant]

REACTIONS (7)
  - ASTHENIA [None]
  - HEADACHE [None]
  - HYPERTENSION [None]
  - MALAISE [None]
  - MICTURITION URGENCY [None]
  - MYALGIA [None]
  - POLLAKIURIA [None]
